FAERS Safety Report 8863138 (Version 2)
Quarter: 2012Q4

REPORT INFORMATION
  Report Type: 
  Country: AU (occurrence: AU)
  Receive Date: 20121026
  Receipt Date: 20121211
  Transmission Date: 20130627
  Serious: Yes (Hospitalization, Other)
  Sender: FDA-Public Use
  Company Number: PHHY2012AU088649

PATIENT
  Age: 62 None
  Sex: Male
  Weight: 75.6 kg

DRUGS (13)
  1. CLOZARIL [Suspect]
     Indication: SCHIZOPHRENIA
     Dosage: 750 mg
     Route: 048
     Dates: start: 20050507, end: 20120926
  2. CLOZARIL [Suspect]
     Dosage: 750 mg,(100mg twice daily, 550 mg nocte)
     Route: 048
     Dates: start: 20121022
  3. OLANZAPINE [Concomitant]
     Dosage: 5 mg, UNK
  4. BENZTROPEINE [Concomitant]
     Indication: EXTRAPYRAMIDAL DISORDER
     Dosage: 2 mg, BID
     Route: 048
     Dates: start: 20121017
  5. VALPROATE SODIUM [Concomitant]
     Indication: AFFECTIVE DISORDER
     Dosage: 900 mg
     Route: 048
     Dates: start: 20121017
  6. DIAZEPAM [Concomitant]
     Indication: AGITATION
     Dosage: 10 mg, TID
     Route: 048
  7. OMEPRAZOLE [Concomitant]
     Indication: GASTROOESOPHAGEAL REFLUX DISEASE
     Dosage: 20 mg, BID
     Route: 048
     Dates: start: 2000
  8. DE-GAS [Concomitant]
     Dosage: 2 DF, BID
  9. COLOXYL WITH SENNA [Concomitant]
     Dosage: 20 ml, TID
  10. SALT TABLETS [Concomitant]
     Dosage: 600 mg, TID
  11. OSTELIN [Concomitant]
     Dosage: 25 mg, QD
  12. ALENDRONATE [Concomitant]
     Indication: OSTEOPOROSIS
     Dosage: 70 mg, UNK
     Dates: start: 20110625
  13. PARACETAMOL [Concomitant]
     Dosage: 1 g, TID

REACTIONS (25)
  - Ataxia [Unknown]
  - Hypotension [Unknown]
  - Agranulocytosis [Unknown]
  - Neutropenia [Recovered/Resolved]
  - Akathisia [Unknown]
  - Agitation [Unknown]
  - Left ventricular hypertrophy [Unknown]
  - Ejection fraction decreased [Unknown]
  - Systolic dysfunction [Unknown]
  - Gastritis erosive [Unknown]
  - Polyp [Unknown]
  - Hypothyroidism [Unknown]
  - Atrophy [Unknown]
  - Spinal osteoarthritis [Unknown]
  - Occult blood positive [Unknown]
  - Blood creatine phosphokinase increased [Unknown]
  - Ventricular extrasystoles [Unknown]
  - Supraventricular extrasystoles [Unknown]
  - Gastrooesophageal reflux disease [Unknown]
  - Osteoporosis [Unknown]
  - Hyponatraemia [Unknown]
  - Hypertension [Unknown]
  - Salivary hypersecretion [Recovered/Resolved]
  - Anaemia [Unknown]
  - Constipation [Unknown]
